FAERS Safety Report 12808705 (Version 1)
Quarter: 2016Q4

REPORT INFORMATION
  Report Type: Spontaneous
  Country: GB (occurrence: GB)
  Receive Date: 20161004
  Receipt Date: 20161004
  Transmission Date: 20170207
  Serious: Yes (Other)
  Sender: FDA-Public Use
  Company Number: GB-JNJFOC-20160929519

PATIENT

DRUGS (5)
  1. DOXORUBICIN HYDROCHLORIDE. [Suspect]
     Active Substance: DOXORUBICIN HYDROCHLORIDE
     Indication: RICHTER^S SYNDROME
     Dosage: EVERY 21 DAY
     Route: 065
  2. VINCRISTINE [Suspect]
     Active Substance: VINCRISTINE
     Indication: RICHTER^S SYNDROME
     Dosage: EVERY 21 DAY
     Route: 065
  3. OFATUMUMAB [Suspect]
     Active Substance: OFATUMUMAB
     Indication: RICHTER^S SYNDROME
     Dosage: CYCLE 1: 300 MG DAY 1, 1000 MG DAY 8, 1000 MG DAY 15; CYCLES 2-6:1000 MG DAY 1
     Route: 065
  4. CYCLOPHOSPHAMIDE. [Suspect]
     Active Substance: CYCLOPHOSPHAMIDE
     Indication: RICHTER^S SYNDROME
     Dosage: EVERY 21 DAY
     Route: 065
  5. PREDNISOLONE. [Suspect]
     Active Substance: PREDNISOLONE
     Indication: RICHTER^S SYNDROME
     Dosage: EVERY 21 DAY
     Route: 065

REACTIONS (12)
  - Febrile neutropenia [Unknown]
  - Thrombocytopenia [Unknown]
  - Pneumonia [Unknown]
  - Toxicity to various agents [Unknown]
  - Bronchiectasis [Unknown]
  - Vomiting [Unknown]
  - Hyperhidrosis [Unknown]
  - Sepsis [Unknown]
  - Urticaria [Unknown]
  - Pyrexia [Unknown]
  - Rash [Unknown]
  - Adverse event [Unknown]
